FAERS Safety Report 8459414-5 (Version None)
Quarter: 2012Q2

REPORT INFORMATION
  Report Type: 
  Country: None (occurrence: None)
  Receive Date: 20120622
  Receipt Date: 20111225
  Transmission Date: 20120825
  Serious: Yes (Other)
  Sender: FDA-Public Use
  Company Number: ES-ELI_LILLY_AND_COMPANY-ES201112006204

PATIENT
  Sex: Male
  Weight: 63 kg

DRUGS (9)
  1. ATORVASTATIN CALCIUM [Concomitant]
     Indication: HYPERLIPIDAEMIA
     Dosage: 40 MG, QD
     Route: 048
  2. LORAZEPAM [Concomitant]
     Indication: SEDATIVE THERAPY
     Dosage: 2 MG, QD
     Route: 048
  3. ACFOL [Concomitant]
     Indication: ADJUVANT THERAPY
     Dosage: 5 MG, QD
     Route: 048
  4. ALIMTA [Suspect]
     Indication: LUNG NEOPLASM MALIGNANT
     Dosage: UNK DOSE, EVERY THREE WEEKS
     Route: 042
     Dates: start: 20111219
  5. SEPTRA [Concomitant]
     Indication: PROPHYLAXIS
     Dosage: 400/80MG, QD
     Route: 048
  6. PANTOPRAZOLE [Concomitant]
     Indication: PROPHYLAXIS
     Dosage: 40 MG, QD
     Route: 048
  7. BISOPROLOL FUMARATE [Concomitant]
     Indication: HYPERTENSION
     Dosage: 2.5 MG, QD
     Route: 048
  8. COLCHIMAX                               /SPA/ [Concomitant]
     Indication: RHEUMATOID ARTHRITIS
     Dosage: 0.5/5 MG / DAY
     Route: 048
     Dates: start: 20070101
  9. ASPIRIN [Concomitant]
     Indication: ANTIPLATELET THERAPY
     Dosage: 100 MG, QD
     Route: 048

REACTIONS (5)
  - RECTAL HAEMORRHAGE [None]
  - ANXIETY [None]
  - DIZZINESS [None]
  - ERYTHEMA [None]
  - FEELING HOT [None]
